FAERS Safety Report 21274488 (Version 1)
Quarter: 2022Q3

REPORT INFORMATION
  Report Type: Spontaneous
  Country: US (occurrence: None)
  Receive Date: 20220830
  Receipt Date: 20220830
  Transmission Date: 20221027
  Serious: No
  Sender: FDA-Public Use
  Company Number: None

PATIENT
  Age: 49 Year
  Sex: Female

DRUGS (2)
  1. EPSOLAY [Suspect]
     Active Substance: BENZOYL PEROXIDE
     Indication: Rosacea
     Dosage: OTHER QUANTITY : 30 PUMP;?FREQUENCY : AT BEDTIME;?
     Route: 061
     Dates: start: 20220725, end: 20220829
  2. RHOFADE [Concomitant]
     Active Substance: OXYMETAZOLINE HYDROCHLORIDE

REACTIONS (6)
  - Application site burn [None]
  - Application site pruritus [None]
  - Skin exfoliation [None]
  - Dry skin [None]
  - Paraesthesia [None]
  - Therapy cessation [None]

NARRATIVE: CASE EVENT DATE: 20220829
